FAERS Safety Report 19177327 (Version 1)
Quarter: 2021Q2

REPORT INFORMATION
  Report Type: Spontaneous
  Country: US (occurrence: US)
  Receive Date: 20210425
  Receipt Date: 20210425
  Transmission Date: 20210717
  Serious: No
  Sender: FDA-Public Use
  Company Number: US-PERRIGO-20US014379

PATIENT
  Sex: Female

DRUGS (2)
  1. CICLOPIROX OLAMINE. [Suspect]
     Active Substance: CICLOPIROX OLAMINE
     Indication: TINEA CRURIS
     Dosage: UNKNOWN, UNKNOWN
     Route: 061
     Dates: start: 20200927
  2. CICLOPIROX OLAMINE. [Suspect]
     Active Substance: CICLOPIROX OLAMINE
     Indication: ACCIDENTAL EXPOSURE TO PRODUCT

REACTIONS (2)
  - Application site pain [Not Recovered/Not Resolved]
  - Accidental exposure to product [Recovered/Resolved]

NARRATIVE: CASE EVENT DATE: 2020
